FAERS Safety Report 6405549-8 (Version None)
Quarter: 2009Q4

REPORT INFORMATION
  Report Type: 
  Country: None (occurrence: None)
  Receive Date: 20091019
  Receipt Date: 20090918
  Transmission Date: 20100525
  Serious: No
  Sender: FDA-Public Use
  Company Number: US-BAYER-200933918NA

PATIENT
  Age: 20 Year
  Sex: Female

DRUGS (1)
  1. YAZ [Suspect]
     Indication: CONTRACEPTION
     Dates: start: 20090101

REACTIONS (1)
  - VAGINAL HAEMORRHAGE [None]
